FAERS Safety Report 25808326 (Version 3)
Quarter: 2025Q4

REPORT INFORMATION
  Report Type: Spontaneous
  Country: JP (occurrence: JP)
  Receive Date: 20250916
  Receipt Date: 20251125
  Transmission Date: 20260118
  Serious: Yes (Other)
  Sender: OTSUKA
  Company Number: JP-MMM-Otsuka-S5YUZXE7

PATIENT
  Age: 46 Year
  Sex: Female

DRUGS (4)
  1. REXULTI [Suspect]
     Active Substance: BREXPIPRAZOLE
     Indication: Depression
     Dosage: 2 MG/DAY
     Dates: start: 20250803, end: 20250819
  2. REXULTI [Suspect]
     Active Substance: BREXPIPRAZOLE
     Dosage: 0.5 MG, DAILY
     Dates: end: 20250728
  3. REXULTI [Suspect]
     Active Substance: BREXPIPRAZOLE
     Dosage: 1 MG/DAY
     Dates: start: 20250729, end: 20250802
  4. DANTRIUM [Suspect]
     Active Substance: DANTROLENE SODIUM
     Indication: Blood creatine phosphokinase increased
     Dosage: 50 MG, DAILY
     Dates: start: 20250820, end: 20250917

REACTIONS (5)
  - Rhabdomyolysis [Recovered/Resolved]
  - Neuroleptic malignant syndrome [Recovered/Resolved]
  - Muscular weakness [Unknown]
  - Blood creatine phosphokinase increased [Recovered/Resolved]
  - Product use in unapproved indication [Unknown]

NARRATIVE: CASE EVENT DATE: 20250819
